FAERS Safety Report 6579211-5 (Version None)
Quarter: 2010Q1

REPORT INFORMATION
  Report Type: 
  Country: None (occurrence: None)
  Receive Date: 20100203
  Receipt Date: 20100119
  Transmission Date: 20100710
  Serious: Yes (Hospitalization)
  Sender: FDA-Public Use
  Company Number: 2010000013

PATIENT
  Age: 60 Year
  Sex: Female

DRUGS (6)
  1. ERLOTINIB (ERLOTINIB) (TABLET) (ERLOTINIB) [Suspect]
     Indication: NON-SMALL CELL LUNG CANCER
     Dosage: QD, ORAL
     Route: 048
     Dates: start: 20091027
  2. AZATHIOPRINE [Concomitant]
  3. DEXAMETHASONE TAB [Concomitant]
  4. DILTIAZEM [Concomitant]
  5. ATORVASTATIN CALCIUM [Concomitant]
  6. HYDROXYCHLOROQUINE SULFATE [Concomitant]

REACTIONS (5)
  - NEUTROPHIL COUNT INCREASED [None]
  - PLATELET COUNT DECREASED [None]
  - PULMONARY EMBOLISM [None]
  - PULMONARY INFARCTION [None]
  - WHITE BLOOD CELL COUNT INCREASED [None]
